FAERS Safety Report 19403015 (Version 1)
Quarter: 2021Q2

REPORT INFORMATION
  Report Type: Spontaneous
  Country: GT (occurrence: GT)
  Receive Date: 20210610
  Receipt Date: 20210610
  Transmission Date: 20210717
  Serious: Yes (Death)
  Sender: FDA-Public Use
  Company Number: NVSC2021GT130599

PATIENT
  Sex: Female

DRUGS (1)
  1. GLIVEC [Suspect]
     Active Substance: IMATINIB MESYLATE
     Indication: CHRONIC MYELOID LEUKAEMIA
     Dosage: 400 MG (4X100 MG TABLET)
     Route: 065

REACTIONS (6)
  - Eating disorder [Unknown]
  - Depression [Unknown]
  - Diarrhoea [Unknown]
  - Death [Fatal]
  - Weight decreased [Unknown]
  - Vomiting [Unknown]
